FAERS Safety Report 18574683 (Version 1)
Quarter: 2020Q4

REPORT INFORMATION
  Report Type: Spontaneous
  Country: CL (occurrence: CL)
  Receive Date: 20201203
  Receipt Date: 20201203
  Transmission Date: 20210114
  Serious: Yes (Other)
  Sender: FDA-Public Use
  Company Number: CL-PFIZER INC-2020450835

PATIENT
  Age: 32 Year
  Sex: Female

DRUGS (2)
  1. SAYANA PRESS [Suspect]
     Active Substance: MEDROXYPROGESTERONE\MEDROXYPROGESTERONE ACETATE
     Indication: CYST
  2. SAYANA PRESS [Suspect]
     Active Substance: MEDROXYPROGESTERONE\MEDROXYPROGESTERONE ACETATE
     Indication: CONTRACEPTION
     Dosage: 1 DF, EVERY 3 MONTHS
     Route: 058
     Dates: start: 201910

REACTIONS (6)
  - Injection site erythema [Recovered/Resolved]
  - Drug hypersensitivity [Recovering/Resolving]
  - Injection site swelling [Recovering/Resolving]
  - Administration site discharge [Recovering/Resolving]
  - Injection site induration [Recovering/Resolving]
  - Injection site pain [Recovering/Resolving]
